FAERS Safety Report 18132265 (Version 1)
Quarter: 2020Q3

REPORT INFORMATION
  Report Type: Spontaneous
  Country: US (occurrence: US)
  Receive Date: 20200811
  Receipt Date: 20200811
  Transmission Date: 20201103
  Serious: Yes (Other)
  Sender: FDA-Public Use
  Company Number: US-MTPC-MTDA2020-0060022

PATIENT
  Age: 59 Year
  Sex: Female

DRUGS (2)
  1. RILUZOLE. [Concomitant]
     Active Substance: RILUZOLE
     Indication: PRODUCT USED FOR UNKNOWN INDICATION
     Dosage: UNK
     Route: 065
  2. RADICAVA [Suspect]
     Active Substance: EDARAVONE
     Indication: AMYOTROPHIC LATERAL SCLEROSIS
     Dosage: UNK
     Route: 065
     Dates: start: 20200418

REACTIONS (4)
  - Blood triglycerides increased [Not Recovered/Not Resolved]
  - Blood cholesterol increased [Not Recovered/Not Resolved]
  - Dislocation of vertebra [Not Recovered/Not Resolved]
  - Epstein-Barr virus infection [Not Recovered/Not Resolved]

NARRATIVE: CASE EVENT DATE: 20200711
